FAERS Safety Report 24680454 (Version 1)
Quarter: 2024Q4

REPORT INFORMATION
  Report Type: Spontaneous
  Country: US (occurrence: US)
  Receive Date: 20241129
  Receipt Date: 20241129
  Transmission Date: 20250115
  Serious: Yes (Other)
  Sender: DR REDDYS
  Company Number: None

PATIENT
  Age: 49 Year
  Sex: Female

DRUGS (24)
  1. DOXORUBICIN [Suspect]
     Active Substance: DOXORUBICIN
     Indication: Hodgkin^s disease
     Dosage: 4 CYCLES
     Dates: start: 2018, end: 2018
  2. DOXORUBICIN [Suspect]
     Active Substance: DOXORUBICIN
     Indication: Metastases to liver
  3. DOXORUBICIN [Suspect]
     Active Substance: DOXORUBICIN
     Indication: Intestinal metastasis
  4. DOXORUBICIN [Suspect]
     Active Substance: DOXORUBICIN
     Indication: Metastases to adrenals
  5. DOXORUBICIN [Suspect]
     Active Substance: DOXORUBICIN
     Indication: Metastases to peritoneum
  6. DOXORUBICIN [Suspect]
     Active Substance: DOXORUBICIN
     Indication: Metastases to lymph nodes
  7. BLEOMYCIN [Suspect]
     Active Substance: BLEOMYCIN SULFATE
     Indication: Hodgkin^s disease
     Dosage: 4 CYCLES
     Dates: start: 2018, end: 2018
  8. BLEOMYCIN [Suspect]
     Active Substance: BLEOMYCIN SULFATE
     Indication: Metastases to liver
  9. BLEOMYCIN [Suspect]
     Active Substance: BLEOMYCIN SULFATE
     Indication: Intestinal metastasis
  10. BLEOMYCIN [Suspect]
     Active Substance: BLEOMYCIN SULFATE
     Indication: Metastases to adrenals
  11. BLEOMYCIN [Suspect]
     Active Substance: BLEOMYCIN SULFATE
     Indication: Metastases to peritoneum
  12. BLEOMYCIN [Suspect]
     Active Substance: BLEOMYCIN SULFATE
     Indication: Metastases to lymph nodes
  13. VINBLASTINE [Suspect]
     Active Substance: VINBLASTINE
     Indication: Hodgkin^s disease
     Dosage: 4 CYCLES
     Dates: start: 2018, end: 2018
  14. VINBLASTINE [Suspect]
     Active Substance: VINBLASTINE
     Indication: Metastases to liver
  15. VINBLASTINE [Suspect]
     Active Substance: VINBLASTINE
     Indication: Intestinal metastasis
  16. VINBLASTINE [Suspect]
     Active Substance: VINBLASTINE
     Indication: Metastases to adrenals
  17. VINBLASTINE [Suspect]
     Active Substance: VINBLASTINE
     Indication: Metastases to peritoneum
  18. VINBLASTINE [Suspect]
     Active Substance: VINBLASTINE
     Indication: Metastases to lymph nodes
  19. DACARBAZINE [Suspect]
     Active Substance: DACARBAZINE
     Indication: Hodgkin^s disease
     Dosage: 4 CYCLES
     Dates: start: 2018, end: 2018
  20. DACARBAZINE [Suspect]
     Active Substance: DACARBAZINE
     Indication: Metastases to liver
  21. DACARBAZINE [Suspect]
     Active Substance: DACARBAZINE
     Indication: Intestinal metastasis
  22. DACARBAZINE [Suspect]
     Active Substance: DACARBAZINE
     Indication: Metastases to adrenals
  23. DACARBAZINE [Suspect]
     Active Substance: DACARBAZINE
     Indication: Metastases to peritoneum
  24. DACARBAZINE [Suspect]
     Active Substance: DACARBAZINE
     Indication: Metastases to lymph nodes

REACTIONS (1)
  - Febrile neutropenia [Unknown]

NARRATIVE: CASE EVENT DATE: 20180101
